FAERS Safety Report 11451839 (Version 1)
Quarter: 2015Q3

REPORT INFORMATION
  Report Type: Spontaneous
  Country: US (occurrence: US)
  Receive Date: 20150903
  Receipt Date: 20150903
  Transmission Date: 20151125
  Serious: No
  Sender: FDA-Public Use
  Company Number: US-ROCHE-1060079

PATIENT
  Sex: Female

DRUGS (5)
  1. LITHIUM. [Concomitant]
     Active Substance: LITHIUM
     Dosage: UNKNOWN
     Route: 065
  2. PEGASYS [Suspect]
     Active Substance: PEGINTERFERON ALFA-2A
     Indication: CHRONIC HEPATITIS C
     Route: 058
     Dates: start: 20120408
  3. RIBAVIRIN. [Suspect]
     Active Substance: RIBAVIRIN
     Indication: CHRONIC HEPATITIS C
     Route: 048
     Dates: start: 20120408
  4. DEPAKOTE [Concomitant]
     Active Substance: DIVALPROEX SODIUM
     Dosage: UNKNOWN
     Route: 065
  5. VITAMIN B3 [Concomitant]
     Active Substance: NIACIN
     Dosage: UNKNOWN
     Route: 065

REACTIONS (1)
  - Malaise [Unknown]
